FAERS Safety Report 19886469 (Version 1)
Quarter: 2021Q3

REPORT INFORMATION
  Report Type: Spontaneous
  Country: JP (occurrence: JP)
  Receive Date: 20210927
  Receipt Date: 20210927
  Transmission Date: 20211014
  Serious: Yes (Other)
  Sender: FDA-Public Use
  Company Number: JP-PFIZER INC-2021738676

PATIENT
  Age: 46 Year
  Sex: Male

DRUGS (11)
  1. LORAZEPAM. [Suspect]
     Active Substance: LORAZEPAM
     Dosage: UNK
  2. LANDSEN [Suspect]
     Active Substance: CLONAZEPAM
     Dosage: 0.5 MG, DAILY
  3. ESCITALOPRAM [Concomitant]
     Active Substance: ESCITALOPRAM OXALATE
     Indication: SOCIAL ANXIETY DISORDER
  4. FLUNITRAZEPAM [Concomitant]
     Active Substance: FLUNITRAZEPAM
     Indication: INSOMNIA
     Dosage: 2 MG, DAILY
  5. RIZE [CLOTIAZEPAM] [Suspect]
     Active Substance: CLOTIAZEPAM
     Dosage: 15 MG, DAILY
  6. EFFEXOR [Suspect]
     Active Substance: VENLAFAXINE HYDROCHLORIDE
     Dosage: 75 MG, DAILY
     Route: 048
  7. EFFEXOR [Suspect]
     Active Substance: VENLAFAXINE HYDROCHLORIDE
     Indication: DEPRESSION
     Dosage: 37.5 MG, DAILY
     Route: 048
  8. ESCITALOPRAM [Concomitant]
     Active Substance: ESCITALOPRAM OXALATE
     Indication: DEPRESSION
     Dosage: 10 MG, DAILY
  9. BELSOMRA [Concomitant]
     Active Substance: SUVOREXANT
     Indication: INSOMNIA
     Dosage: 20 MG, DAILY
  10. LANDSEN [Suspect]
     Active Substance: CLONAZEPAM
     Dosage: 1.0 MG, DAILY
  11. BENZALIN [NITRAZEPAM] [Suspect]
     Active Substance: NITRAZEPAM
     Dosage: 5 MG

REACTIONS (5)
  - Condition aggravated [Recovering/Resolving]
  - Middle insomnia [Recovering/Resolving]
  - Restless legs syndrome [Recovering/Resolving]
  - Somnolence [Recovering/Resolving]
  - Erectile dysfunction [Recovering/Resolving]
